FAERS Safety Report 14130360 (Version 1)
Quarter: 2017Q4

REPORT INFORMATION
  Report Type: Spontaneous
  Country: TN (occurrence: FR)
  Receive Date: 20171026
  Receipt Date: 20171026
  Transmission Date: 20180321
  Serious: Yes (Other)
  Sender: FDA-Public Use
  Company Number: FR-TELIGENT, INC-IGIL20170452

PATIENT
  Age: 12 Year
  Sex: Female

DRUGS (11)
  1. COLIMYCIN [Concomitant]
     Active Substance: COLISTIMETHATE SODIUM
     Indication: CYSTIC FIBROSIS
     Dosage: UNKNOWN
     Route: 055
  2. ITRACONAZOLE. [Concomitant]
     Active Substance: ITRACONAZOLE
     Indication: BRONCHOPULMONARY ASPERGILLOSIS
     Dosage: UNKNOWN
     Route: 048
  3. AMIKACIN [Concomitant]
     Active Substance: AMIKACIN
     Indication: INFECTIVE PULMONARY EXACERBATION OF CYSTIC FIBROSIS
     Dosage: UNKNOWN
     Route: 042
  4. DRNASE ALPHA [Concomitant]
     Indication: CYSTIC FIBROSIS
     Dosage: UNKNOWN
     Route: 055
  5. SALINE [Concomitant]
     Active Substance: SODIUM CHLORIDE
     Indication: CYSTIC FIBROSIS
     Dosage: UNKNOWN
     Route: 045
  6. HYDROCORTISONE. [Concomitant]
     Active Substance: HYDROCORTISONE
     Indication: CYSTIC FIBROSIS
     Dosage: UNKNOWN
     Route: 065
  7. PANCREATIC ENZYMES [Concomitant]
     Active Substance: UNSPECIFIED INGREDIENT
     Indication: CYSTIC FIBROSIS
     Dosage: UNKNOWN
     Route: 065
  8. PRISTINAMYCIN [Concomitant]
     Active Substance: PRISTINAMYCIN
     Indication: CYSTIC FIBROSIS
     Dosage: UNKNOWN
     Route: 065
  9. CEFTAZIDIME. [Suspect]
     Active Substance: CEFTAZIDIME
     Indication: INFECTIVE PULMONARY EXACERBATION OF CYSTIC FIBROSIS
     Dosage: UNKNOWN
     Route: 042
  10. VITAMINS [Concomitant]
     Active Substance: VITAMINS
     Indication: CYSTIC FIBROSIS
     Dosage: UNKNOWN
     Route: 065
  11. MINOCYCLINE [Concomitant]
     Active Substance: MINOCYCLINE\MINOCYCLINE HYDROCHLORIDE
     Indication: CYSTIC FIBROSIS
     Dosage: UNKNOWN
     Route: 065

REACTIONS (10)
  - Skin burning sensation [Recovered/Resolved]
  - Pruritus [Recovered/Resolved]
  - Macule [Recovered/Resolved with Sequelae]
  - Skin lesion [Recovered/Resolved with Sequelae]
  - Fixed eruption [Recovered/Resolved with Sequelae]
  - Lymphocytic infiltration [Recovered/Resolved]
  - Skin hyperpigmentation [Not Recovered/Not Resolved]
  - Erythema [Recovered/Resolved]
  - Rash [Recovered/Resolved with Sequelae]
  - Epidermal necrosis [Recovered/Resolved with Sequelae]
